FAERS Safety Report 8575924-4 (Version None)
Quarter: 2012Q2

REPORT INFORMATION
  Report Type: 
  Country: None (occurrence: None)
  Receive Date: 20120423
  Receipt Date: 20101022
  Transmission Date: 20120825
  Serious: Yes (Hospitalization, Other)
  Sender: FDA-Public Use
  Company Number: PHHY2010US57827

PATIENT
  Age: 76 Year
  Sex: Male

DRUGS (7)
  1. XANAX [Concomitant]
  2. FOLIC ACID [Concomitant]
  3. LASIX [Concomitant]
  4. DIGOXIN [Concomitant]
  5. AMLODIPINE [Concomitant]
  6. PRILOSEC [Concomitant]
  7. EXJADE [Suspect]
     Dosage: 2000 MG, QD, ORAL, 1500 MG, BID, OPTHALMIC, 500 MG DAILY, ORAL
     Route: 048

REACTIONS (21)
  - BLOOD UREA INCREASED [None]
  - SURGERY [None]
  - PEPTIC ULCER [None]
  - HAEMATOCHEZIA [None]
  - ABDOMINAL PAIN [None]
  - PALLOR [None]
  - GASTROINTESTINAL HAEMORRHAGE [None]
  - EROSIVE DUODENITIS [None]
  - DIVERTICULITIS [None]
  - ABDOMINAL DISCOMFORT [None]
  - HYPOTENSION [None]
  - VOMITING [None]
  - NAUSEA [None]
  - DIZZINESS [None]
  - MELAENA [None]
  - HEART RATE DECREASED [None]
  - DUODENAL ULCER HAEMORRHAGE [None]
  - DRUG DOSE OMISSION [None]
  - ENDOSCOPY [None]
  - ANAEMIA [None]
  - HAEMOGLOBIN DECREASED [None]
